FAERS Safety Report 15354156 (Version 5)
Quarter: 2019Q3

REPORT INFORMATION
  Report Type: Spontaneous
  Country: KZ (occurrence: KZ)
  Receive Date: 20180906
  Receipt Date: 20190822
  Transmission Date: 20191004
  Serious: Yes (Other)
  Sender: FDA-Public Use
  Company Number: PHHY2018KZ088009

PATIENT
  Age: 0 Day
  Sex: Female
  Weight: 1.27 kg

DRUGS (6)
  1. DELAMANID [Suspect]
     Active Substance: DELAMANID
     Indication: FOETAL EXPOSURE DURING PREGNANCY
     Dosage: MATERNAL DOSE: 200 MG MG, UNKNOWN FREQUENCY
     Route: 064
  2. PYRAZINAMIDE. [Suspect]
     Active Substance: PYRAZINAMIDE
     Indication: FOETAL EXPOSURE DURING PREGNANCY
     Dosage: MATERNAL DOSE: 1500 MG MG, UNKNOWN FREQUENCY
     Route: 064
  3. CLOFAZIMINE [Suspect]
     Active Substance: CLOFAZIMINE
     Indication: FOETAL EXPOSURE DURING PREGNANCY
     Dosage: MATERNAL DOSE: 200 MG MG, UNKNOWN FREQUENCY
     Route: 064
  4. BEDAQUILINE [Suspect]
     Active Substance: BEDAQUILINE
     Indication: FOETAL EXPOSURE DURING PREGNANCY
     Dosage: MATERNAL DOSE: 400 MG MG, UNKNOWN FREQUENCY
     Route: 064
  5. LINEZOLID. [Suspect]
     Active Substance: LINEZOLID
     Indication: FOETAL EXPOSURE DURING PREGNANCY
     Dosage: MATERNAL DOSE: 300 MG MG, UNKNOWN FREQUENCY
     Route: 064
  6. CYCLOSERINE. [Suspect]
     Active Substance: CYCLOSERINE
     Indication: FOETAL EXPOSURE DURING PREGNANCY
     Dosage: MATERNAL DOSE: 750 MG MG, UNKNOWN FREQUENCY
     Route: 064

REACTIONS (2)
  - Exposure via breast milk [Unknown]
  - Premature baby [Unknown]

NARRATIVE: CASE EVENT DATE: 20180721
